FAERS Safety Report 11805737 (Version 2)
Quarter: 2016Q1

REPORT INFORMATION
  Report Type: Spontaneous
  Country: FR (occurrence: FR)
  Receive Date: 20151207
  Receipt Date: 20160119
  Transmission Date: 20160525
  Serious: Yes (Hospitalization)
  Sender: FDA-Public Use
  Company Number: FR-ROCHE-1673660

PATIENT
  Age: 80 Year
  Sex: Female
  Weight: 71 kg

DRUGS (23)
  1. LUCENTIS [Suspect]
     Active Substance: RANIBIZUMAB
     Dosage: SINGLE DOSE IN LEFT EYE
     Route: 050
     Dates: start: 20130329, end: 20130329
  2. LUCENTIS [Suspect]
     Active Substance: RANIBIZUMAB
     Dosage: SINGLE DOSE IN RIGHT EYE
     Route: 050
     Dates: start: 20131004, end: 20131004
  3. LUCENTIS [Suspect]
     Active Substance: RANIBIZUMAB
     Dosage: SINGLE DOSE IN RIGHT EYE
     Route: 050
     Dates: start: 20150206, end: 20150206
  4. DOLIPRANE [Concomitant]
     Active Substance: ACETAMINOPHEN
  5. LUCENTIS [Suspect]
     Active Substance: RANIBIZUMAB
     Dosage: SINGLE DOSE IN RIGHT EYE
     Route: 050
     Dates: start: 20130227, end: 20130227
  6. LUCENTIS [Suspect]
     Active Substance: RANIBIZUMAB
     Dosage: SINGLE DOSE IN LEFT EYE
     Route: 050
     Dates: start: 20140924, end: 20140924
  7. LUCENTIS [Suspect]
     Active Substance: RANIBIZUMAB
     Dosage: SINGLE DOSE IN LEFT EYE
     Route: 050
     Dates: start: 20131011, end: 20131011
  8. LUCENTIS [Suspect]
     Active Substance: RANIBIZUMAB
     Dosage: SINGLE DOSE IN LEFT EYE
     Route: 050
     Dates: start: 20150529, end: 20150529
  9. LUCENTIS [Suspect]
     Active Substance: RANIBIZUMAB
     Dosage: SINGLE DOSE IN LEFT EYE
     Route: 050
     Dates: start: 20140204, end: 20140204
  10. LUCENTIS [Suspect]
     Active Substance: RANIBIZUMAB
     Dosage: SINGLE DOSE IN RIGHT EYE
     Route: 050
     Dates: start: 20140917, end: 20140917
  11. LUCENTIS [Suspect]
     Active Substance: RANIBIZUMAB
     Dosage: SINGLE DOSE IN LEFT EYE
     Route: 050
     Dates: start: 20140327, end: 20140327
  12. LUCENTIS [Suspect]
     Active Substance: RANIBIZUMAB
     Dosage: SINGLE DOSE IN LEFT EYE
     Route: 050
     Dates: start: 20141205, end: 20141205
  13. LUCENTIS [Suspect]
     Active Substance: RANIBIZUMAB
     Dosage: SINGLE DOSE IN LEFT AND RIGHT EYE
     Route: 050
     Dates: start: 20150724, end: 20150724
  14. LUCENTIS [Suspect]
     Active Substance: RANIBIZUMAB
     Indication: NEOVASCULAR AGE-RELATED MACULAR DEGENERATION
     Dosage: SINGLE DOSE IN LEFT EYE
     Route: 050
     Dates: start: 20130213, end: 20130213
  15. LUCENTIS [Suspect]
     Active Substance: RANIBIZUMAB
     Dosage: SINGLE DOSE IN LEFT EYE
     Route: 050
     Dates: start: 20130422, end: 20130422
  16. LUCENTIS [Suspect]
     Active Substance: RANIBIZUMAB
     Dosage: SINGLE DOSE IN LEFT EYE
     Route: 050
     Dates: start: 20130613, end: 20130613
  17. LUCENTIS [Suspect]
     Active Substance: RANIBIZUMAB
     Dosage: SINGLE DOSE IN RIGHT EYE
     Route: 050
     Dates: start: 20140131, end: 20140131
  18. LUCENTIS [Suspect]
     Active Substance: RANIBIZUMAB
     Dosage: SINGLE DOSE IN RIGHT EYE
     Route: 050
     Dates: start: 20150522, end: 20150522
  19. LUCENTIS [Suspect]
     Active Substance: RANIBIZUMAB
     Dosage: SINGLE DOSE IN LEFT EYE
     Route: 050
     Dates: start: 20140613, end: 20140613
  20. LUCENTIS [Suspect]
     Active Substance: RANIBIZUMAB
     Route: 050
     Dates: end: 201509
  21. LUCENTIS [Suspect]
     Active Substance: RANIBIZUMAB
     Dosage: SINGLE DOSE IN RIGHT EYE
     Route: 050
     Dates: start: 20130403, end: 20130403
  22. LUCENTIS [Suspect]
     Active Substance: RANIBIZUMAB
     Dosage: SINGLE DOSE IN RIGHT EYE
     Route: 050
     Dates: start: 20141031, end: 20141031
  23. VOLTAREN [Concomitant]
     Active Substance: DICLOFENAC SODIUM
     Route: 005

REACTIONS (3)
  - Transient ischaemic attack [Recovered/Resolved]
  - Inappropriate schedule of drug administration [Unknown]
  - Gait disturbance [Unknown]

NARRATIVE: CASE EVENT DATE: 20150925
